FAERS Safety Report 11438652 (Version 1)
Quarter: 2015Q3

REPORT INFORMATION
  Report Type: Spontaneous
  Country: US (occurrence: US)
  Receive Date: 20150901
  Receipt Date: 20150901
  Transmission Date: 20151125
  Serious: No
  Sender: FDA-Public Use
  Company Number: US-ROCHE-1086321

PATIENT
  Sex: Female

DRUGS (3)
  1. COPEGUS [Suspect]
     Active Substance: RIBAVIRIN
     Indication: HEPATITIS C
  2. PEGASYS [Suspect]
     Active Substance: PEGINTERFERON ALFA-2A
     Indication: HEPATITIS C
  3. INCIVEK [Suspect]
     Active Substance: TELAPREVIR
     Indication: HEPATITIS C

REACTIONS (6)
  - Anaemia [Recovered/Resolved]
  - Influenza like illness [Recovered/Resolved]
  - Proctalgia [Recovered/Resolved]
  - Gastrointestinal disorder [Recovered/Resolved]
  - Anorectal discomfort [Recovered/Resolved]
  - Product quality issue [Unknown]
